FAERS Safety Report 18857466 (Version 2)
Quarter: 2021Q1

REPORT INFORMATION
  Report Type: Spontaneous
  Country: JP (occurrence: JP)
  Receive Date: 20210208
  Receipt Date: 20210316
  Transmission Date: 20210420
  Serious: Yes (Hospitalization)
  Sender: FDA-Public Use
  Company Number: JP-TEVA-2021-JP-000515J

PATIENT
  Age: 74 Year
  Sex: Male
  Weight: 55 kg

DRUGS (16)
  1. OLANZAPINE OD TABLET 10MG TEVA [Suspect]
     Active Substance: OLANZAPINE
     Indication: INSOMNIA
     Dosage: 10 MILLIGRAM DAILY;
     Route: 048
     Dates: start: 20210118, end: 20210118
  2. GRAMALIL [Concomitant]
     Active Substance: TIAPRIDE HYDROCHLORIDE
     Route: 065
     Dates: start: 20201113
  3. TSUMURA YOKUKANSAN EXTRACT GRANULES FOR ETHICAL USE [Concomitant]
     Active Substance: HERBALS
     Route: 065
     Dates: start: 20201112, end: 20201112
  4. UBIDECARENONE. [Concomitant]
     Active Substance: UBIDECARENONE
     Route: 065
     Dates: start: 20201202
  5. ALINAMIN F [Concomitant]
     Active Substance: FURSULTIAMINE HYDROCHLORIDE
     Route: 065
     Dates: start: 20201202
  6. CINAL [Concomitant]
     Route: 065
     Dates: start: 20201202
  7. BELSOMRA [Concomitant]
     Active Substance: SUVOREXANT
     Route: 065
     Dates: start: 20210112, end: 20210112
  8. RISPERIDONE. [Concomitant]
     Active Substance: RISPERIDONE
     Route: 065
     Dates: start: 20201110, end: 20210117
  9. RISPERIDONE. [Concomitant]
     Active Substance: RISPERIDONE
     Route: 065
     Dates: start: 20210121
  10. SENNOSIDE [Concomitant]
     Active Substance: SENNOSIDES
     Route: 065
     Dates: start: 20210101
  11. E KEPPRA [Concomitant]
     Active Substance: LEVETIRACETAM
     Route: 065
     Dates: start: 20201023
  12. TRAZODONE [Concomitant]
     Active Substance: TRAZODONE HYDROCHLORIDE
     Route: 065
     Dates: start: 20210108, end: 20210118
  13. OLANZAPINE OD TABLET 10MG TEVA [Suspect]
     Active Substance: OLANZAPINE
     Indication: PROPHYLAXIS
     Dosage: 5 MILLIGRAM DAILY;
     Route: 048
     Dates: start: 20210119, end: 20210120
  14. TAURINE [Concomitant]
     Active Substance: TAURINE
     Route: 065
     Dates: start: 20201202, end: 20210118
  15. TRAZODONE [Concomitant]
     Active Substance: TRAZODONE HYDROCHLORIDE
     Route: 065
     Dates: start: 20210120
  16. L?CARTIN FF [Concomitant]
     Active Substance: LEVOCARNITINE
     Route: 065
     Dates: start: 20201202

REACTIONS (5)
  - Pain [Unknown]
  - Pyrexia [Recovered/Resolved]
  - Product use in unapproved indication [Unknown]
  - Somnolence [Unknown]
  - Liver disorder [Recovering/Resolving]

NARRATIVE: CASE EVENT DATE: 20210119
